FAERS Safety Report 7455774-2 (Version None)
Quarter: 2011Q2

REPORT INFORMATION
  Report Type: 
  Country: None (occurrence: None)
  Receive Date: 20110503
  Receipt Date: 20110427
  Transmission Date: 20111010
  Serious: Yes (Hospitalization, Other)
  Sender: FDA-Public Use
  Company Number: FR-PFIZER INC-2011090213

PATIENT
  Age: 70 Year
  Sex: Male

DRUGS (12)
  1. LERCAPRESS [Concomitant]
     Dosage: 1 DF, 1X/DAY
     Route: 048
  2. XANAX [Concomitant]
     Dosage: 0.25 MG, 3X/DAY
     Route: 048
  3. TAHOR [Suspect]
     Dosage: 40 MG, 1X/DAY
     Route: 048
     Dates: end: 20110105
  4. TARDYFERON [Concomitant]
     Dosage: 80 MG, 2X/DAY
     Route: 048
  5. PREVISCAN [Suspect]
     Dosage: 20 MG, 1X/DAY
     Route: 048
     Dates: end: 20110105
  6. ATENOLOL [Concomitant]
     Dosage: 50 MG, 2X/DAY
     Route: 048
  7. OMEPRAZOLE [Concomitant]
     Dosage: 1 DF, 1X/DAY
     Route: 048
  8. LANTUS [Concomitant]
     Dosage: 16 IU, 1X/DAY
     Route: 058
  9. CITALOPRAM [Concomitant]
     Dosage: 20 MG, 2X/DAY
     Route: 048
  10. DOGMATIL [Concomitant]
     Dosage: 2 DF, 3X/DAY
     Route: 048
     Dates: start: 20101213
  11. LASIX [Concomitant]
     Dosage: 40 MG, 1X/DAY
     Route: 048
  12. LANTUS [Concomitant]
     Dosage: 6 IU, 1X/DAY
     Route: 058

REACTIONS (1)
  - GASTROINTESTINAL HAEMORRHAGE [None]
